FAERS Safety Report 11068822 (Version 2)
Quarter: 2015Q2

REPORT INFORMATION
  Report Type: Spontaneous
  Country: NL (occurrence: NL)
  Receive Date: 20150427
  Receipt Date: 20150602
  Transmission Date: 20150821
  Serious: Yes (Hospitalization)
  Sender: FDA-Public Use
  Company Number: NL-ABBVIE-15P-114-1378871-00

PATIENT
  Age: 49 Year
  Sex: Female

DRUGS (3)
  1. SALAZOPYRINE [Concomitant]
     Active Substance: SULFASALAZINE
     Indication: AXIAL SPONDYLOARTHRITIS
     Dates: start: 2011
  2. HUMIRA [Suspect]
     Active Substance: ADALIMUMAB
     Route: 058
  3. HUMIRA [Suspect]
     Active Substance: ADALIMUMAB
     Indication: AXIAL SPONDYLOARTHRITIS
     Route: 058
     Dates: start: 2011, end: 2013

REACTIONS (6)
  - Vasculitis [Recovered/Resolved]
  - Neuroborreliosis [Recovered/Resolved]
  - Mononeuropathy [Recovered/Resolved]
  - Lyme disease [Recovered/Resolved]
  - Acrodermatitis chronica atrophicans [Recovered/Resolved]
  - Carditis [Recovered/Resolved]
